FAERS Safety Report 7830332-6 (Version None)
Quarter: 2011Q4

REPORT INFORMATION
  Report Type: 
  Country: None (occurrence: None)
  Receive Date: 20111021
  Receipt Date: 20111018
  Transmission Date: 20120403
  Serious: Yes (Hospitalization, Other)
  Sender: FDA-Public Use
  Company Number: SK-PFIZER INC-2006126727

PATIENT
  Age: 22 Year
  Sex: Female
  Weight: 83.2 kg

DRUGS (7)
  1. KLIMONORM [Concomitant]
     Indication: CONTRACEPTION
     Dosage: 21 DAYS+ 7 DAYS PAUSE
     Route: 048
  2. AKTIFERRIN COMPOSITUM [Concomitant]
     Dosage: 1 TABLET AT NOON + 1 TABLET IN THE EVENING
     Route: 048
  3. SOMATROPIN RDNA [Suspect]
     Indication: HYPOPITUITARISM
     Dosage: 0.2 MG, 1X/DAY
     Route: 058
     Dates: start: 20050812
  4. CORTEF [Concomitant]
     Dosage: 12,5 MG - 5,0 MG -2,5 MG,ON MORNING-NOON-EVENING
     Route: 048
  5. SOMATROPIN RDNA [Suspect]
     Dosage: 0.7 MG, 1X/DAY
     Route: 058
  6. PARLODEL [Concomitant]
     Dosage: 1/2 TABLET IN THE EVENING
     Route: 048
  7. LEVOTHYROXINE SODIUM [Concomitant]
     Dosage: 100 MG, 1X/DAY
     Route: 048

REACTIONS (1)
  - PITUITARY TUMOUR BENIGN [None]
